FAERS Safety Report 5107739-3 (Version None)
Quarter: 2006Q3

REPORT INFORMATION
  Report Type: 
  Country: None (occurrence: None)
  Receive Date: 20060919
  Receipt Date: 20060912
  Transmission Date: 20061208
  Serious: Yes (Other)
  Sender: FDA-Public Use
  Company Number: ES-AVENTIS-200619495GDDC

PATIENT
  Age: 66 Year
  Sex: Male
  Weight: 85 kg

DRUGS (2)
  1. KETEK [Suspect]
     Indication: NASOPHARYNGITIS
     Route: 048
     Dates: start: 20050820, end: 20050825
  2. CESPLON [Concomitant]
     Dosage: DOSE: UNK

REACTIONS (8)
  - ANAEMIA [None]
  - ARRHYTHMIA [None]
  - AZOTAEMIA [None]
  - BLOOD CREATINE PHOSPHOKINASE INCREASED [None]
  - FATIGUE [None]
  - HYPERTENSION [None]
  - RENAL FAILURE ACUTE [None]
  - VOMITING [None]
